FAERS Safety Report 4359728-4 (Version None)
Quarter: 2004Q2

REPORT INFORMATION
  Report Type: 
  Country: None (occurrence: None)
  Receive Date: 20040512
  Receipt Date: 20040421
  Transmission Date: 20050107
  Serious: Yes (Hospitalization)
  Sender: FDA-Public Use
  Company Number: JP_040102479

PATIENT
  Age: 32 Year
  Sex: Female
  Weight: 58 kg

DRUGS (2)
  1. ZYPREXA [Suspect]
     Indication: DEPRESSION
     Dosage: 10 MG/DAY
     Dates: start: 20030201, end: 20030829
  2. CHLORPROMAZINE HCL [Concomitant]

REACTIONS (4)
  - BACK PAIN [None]
  - BLOOD DISORDER [None]
  - HEPATIC FUNCTION ABNORMAL [None]
  - WEIGHT INCREASED [None]
